FAERS Safety Report 7288502-4 (Version None)
Quarter: 2011Q1

REPORT INFORMATION
  Report Type: 
  Country: None (occurrence: None)
  Receive Date: 20110211
  Receipt Date: 20110204
  Transmission Date: 20110831
  Serious: Yes (Hospitalization)
  Sender: FDA-Public Use
  Company Number: FR-GENZYME-THYR-1000470

PATIENT
  Sex: Male

DRUGS (2)
  1. THYROGEN [Suspect]
     Dosage: UNK
  2. THYROGEN [Suspect]
     Indication: DIAGNOSTIC PROCEDURE
     Dosage: UNK
     Dates: start: 20100701, end: 20100701

REACTIONS (2)
  - RENAL COLIC [None]
  - NEPHROLITHIASIS [None]
